FAERS Safety Report 10900730 (Version 1)
Quarter: 2015Q1

REPORT INFORMATION
  Report Type: Spontaneous
  Country: GB (occurrence: None)
  Receive Date: 20150303
  Receipt Date: 20150303
  Transmission Date: 20150721
  Serious: Yes (Disabling, Other)
  Sender: FDA-Public Use
  Company Number: CL-615-2015

PATIENT
  Age: 43 Year
  Sex: Female
  Weight: 66 kg

DRUGS (1)
  1. FLUCONAZOLE. [Suspect]
     Active Substance: FLUCONAZOLE
     Indication: VULVOVAGINAL CANDIDIASIS
     Route: 048
     Dates: start: 20131120, end: 20131120

REACTIONS (6)
  - Rash generalised [None]
  - Oral lichen planus [None]
  - Oral mucosal blistering [None]
  - Dyspnoea [None]
  - Blister [None]
  - Pigmentation disorder [None]

NARRATIVE: CASE EVENT DATE: 20131121
